FAERS Safety Report 8837585 (Version 2)
Quarter: 2013Q1

REPORT INFORMATION
  Report Type: Report from Study
  Country: CA (occurrence: CA)
  Receive Date: 20121012
  Receipt Date: 20130118
  Transmission Date: 20140127
  Serious: Yes (Hospitalization)
  Sender: FDA-Public Use
  Company Number: CA-ROCHE-1140179

PATIENT
  Sex: Female
  Weight: 98.97 kg

DRUGS (10)
  1. RITUXIMAB [Suspect]
     Indication: RHEUMATOID ARTHRITIS
     Dosage: LAST DOSE :27/DEC/2011
     Route: 042
     Dates: start: 20080807
  2. PREDNISONE [Concomitant]
  3. METHOTREXATE [Concomitant]
  4. COUMADIN [Concomitant]
  5. SYNTHROID [Concomitant]
  6. CALCIUM [Concomitant]
  7. VITAMIN D [Concomitant]
  8. VITAMIN B12 [Concomitant]
     Route: 065
  9. FOLIC ACID [Concomitant]
  10. FOSAMAX [Concomitant]

REACTIONS (1)
  - Gallbladder disorder [Recovered/Resolved]
